FAERS Safety Report 24979954 (Version 1)
Quarter: 2025Q1

REPORT INFORMATION
  Report Type: Spontaneous
  Country: US (occurrence: US)
  Receive Date: 20250218
  Receipt Date: 20250218
  Transmission Date: 20250409
  Serious: No
  Sender: MERCK SHARP & DOHME LLC
  Company Number: US-PFIZER INC-PV202400109826

PATIENT
  Age: 66 Year
  Sex: Female

DRUGS (5)
  1. TUCATINIB [Suspect]
     Active Substance: TUCATINIB
     Dosage: DOSE DESCRIPTION : 2 TABLETS (150 MG) TWICE DAILY?DAILY DOSE : 600 MILLIGRAM
     Route: 048
  2. TUCATINIB [Suspect]
     Active Substance: TUCATINIB
     Dosage: DOSE DESCRIPTION : TUKYSA 150MG AND TUKYSA 50MG?DAILY DOSE : 400 MILLIGRAM
     Route: 048
  3. TUCATINIB [Suspect]
     Active Substance: TUCATINIB
     Dosage: DOSE DESCRIPTION : 1 TABLET (150 MG) TWICE DAILY AND 1 TABLET (50 MG) TWICE DAILY?DAILY DOSE : 40...
     Route: 048
  4. TUCATINIB [Suspect]
     Active Substance: TUCATINIB
     Dosage: DOSE DESCRIPTION : 1 TABLET (150 MG) TWICE A DAILY?DAILY DOSE : 300 MILLIGRAM
     Route: 048
  5. TUCATINIB [Suspect]
     Active Substance: TUCATINIB
     Dosage: DOSE DESCRIPTION : 1 TABLET (150 MG) TWICE A DAILY?DAILY DOSE : 300 MILLIGRAM
     Route: 048

REACTIONS (2)
  - Product prescribing issue [Unknown]
  - Product prescribing error [Unknown]
